FAERS Safety Report 4887518-2 (Version None)
Quarter: 2006Q1

REPORT INFORMATION
  Report Type: 
  Country: None (occurrence: None)
  Receive Date: 20060118
  Receipt Date: 20051221
  Transmission Date: 20060701
  Serious: Yes (Hospitalization)
  Sender: FDA-Public Use
  Company Number: ES200601001508

PATIENT
  Age: 81 Year
  Sex: Female

DRUGS (7)
  1. FORTEO [Suspect]
     Indication: OSTEOPOROSIS
     Dosage: 20 UG, DAILY (1/D), SUBCUTANEOUS
     Route: 058
     Dates: start: 20051104
  2. FORTEO [Concomitant]
  3. VENTOLIN   /00139501/(SALBUTAMOL0 [Concomitant]
  4. LEXATIN (BROMAZEPAM) [Concomitant]
  5. VALIUM                           /NET/(DIAZEPAM) [Concomitant]
  6. MASTICAL (CALCIUM CARBONATE) [Concomitant]
  7. TRAMADOL HCL [Concomitant]

REACTIONS (2)
  - HIP FRACTURE [None]
  - OSTEONECROSIS [None]
